FAERS Safety Report 5189033-8 (Version None)
Quarter: 2006Q4

REPORT INFORMATION
  Report Type: 
  Country: None (occurrence: None)
  Receive Date: 20061215
  Receipt Date: 20061206
  Transmission Date: 20070319
  Serious: Yes (Hospitalization)
  Sender: FDA-Public Use
  Company Number: 2006151166

PATIENT

DRUGS (1)
  1. CELEBREX [Suspect]

REACTIONS (2)
  - ADVERSE DRUG REACTION [None]
  - DRUG DISPENSING ERROR [None]
